FAERS Safety Report 26120693 (Version 2)
Quarter: 2025Q4

REPORT INFORMATION
  Report Type: Spontaneous
  Country: US (occurrence: US)
  Receive Date: 20251204
  Receipt Date: 20251217
  Transmission Date: 20260118
  Serious: No
  Sender: LUPIN
  Company Number: US-LUPIN PHARMACEUTICALS INC.-2025-10980

PATIENT
  Age: 59 Year

DRUGS (2)
  1. TOLVAPTAN [Suspect]
     Active Substance: TOLVAPTAN
     Indication: Congenital cystic kidney disease
     Dosage: 60 MG, QD,UPON WALKING
     Route: 061
  2. TOLVAPTAN [Suspect]
     Active Substance: TOLVAPTAN
     Indication: Congenital cystic kidney disease
     Dosage: UNK, ONE HALF OF THE 30 MG TABLET BY CUTTING IN HALF (15 MG) BY MOUTH 8 HOURS LATER EVERY DAY
     Route: 061

REACTIONS (2)
  - Depression [Not Recovered/Not Resolved]
  - Wrong technique in product usage process [Unknown]
